FAERS Safety Report 25218293 (Version 2)
Quarter: 2025Q3

REPORT INFORMATION
  Report Type: Spontaneous
  Country: JP (occurrence: JP)
  Receive Date: 20250421
  Receipt Date: 20250901
  Transmission Date: 20251021
  Serious: Yes (Hospitalization, Other)
  Sender: SANOFI AVENTIS
  Company Number: JP-SA-2025SA107926

PATIENT
  Age: 80 Year
  Sex: Female

DRUGS (6)
  1. INSULIN ASPART [Suspect]
     Active Substance: INSULIN ASPART
     Indication: Type 1 diabetes mellitus
     Dosage: 8-4-2, TID
     Route: 065
  2. INSULIN DEGLUDEC [Concomitant]
     Active Substance: INSULIN DEGLUDEC
     Indication: Product used for unknown indication
     Dosage: 10
     Route: 065
  3. ATORVASTATIN CALCIUM TRIHYDRATE [Concomitant]
     Active Substance: ATORVASTATIN CALCIUM TRIHYDRATE
     Indication: Product used for unknown indication
     Route: 065
  4. ASPIRIN [Concomitant]
     Active Substance: ASPIRIN
     Indication: Product used for unknown indication
     Route: 048
  5. FAMOTIDINE [Concomitant]
     Active Substance: FAMOTIDINE
     Indication: Product used for unknown indication
     Route: 065
  6. TERIPARATIDE [TERIPARATIDE ACETATE] [Concomitant]
     Indication: Product used for unknown indication
     Route: 065

REACTIONS (8)
  - Diabetic ketosis [Unknown]
  - Hyperglycaemia [Recovered/Resolved]
  - Product dose omission in error [Unknown]
  - Vomiting [Recovering/Resolving]
  - Dehydration [Unknown]
  - Renal impairment [Unknown]
  - Hypoglycaemia unawareness [Unknown]
  - Overdose [Unknown]
